FAERS Safety Report 23633036 (Version 1)
Quarter: 2024Q1

REPORT INFORMATION
  Report Type: Spontaneous
  Country: NL (occurrence: NL)
  Receive Date: 20240314
  Receipt Date: 20240314
  Transmission Date: 20240410
  Serious: Yes (Hospitalization)
  Sender: FDA-Public Use
  Company Number: None

PATIENT
  Age: 71 Year
  Sex: Male
  Weight: 71 kg

DRUGS (10)
  1. PEMETREXED DISODIUM [Suspect]
     Active Substance: PEMETREXED DISODIUM
     Indication: Lung adenocarcinoma stage IV
     Dosage: ENGLISH TRANSLATION: 1000 MG, IN PRINCIPLE EVERY 3 WEEKS
     Dates: start: 20230814, end: 20240223
  2. KEYTRUDA [Suspect]
     Active Substance: PEMBROLIZUMAB
     Indication: Product used for unknown indication
     Dosage: ENGLISH TRANSLATION: 200 MG, IN PRINCIPLE EVERY 3 WEEKS
     Dates: start: 20230814, end: 20240223
  3. CISPLATIN [Suspect]
     Active Substance: CISPLATIN
     Indication: Product used for unknown indication
     Dosage: ENGLISH TRANSLATION: 150 MG, IN PRINCIPLE EVERY 3 WEEKS
     Dates: start: 20230814, end: 20240223
  4. TAMSULOSINE  CAPSULE MGA 0,4MG / Brand name not specified [Concomitant]
     Indication: Product used for unknown indication
     Dosage: ENGLISH TRANSLATION: RELEASE-REGULATED CAPSULE, 0,4 MG
  5. SUCRALFAAT GRANULAAT 1G / Brand name not specified [Concomitant]
     Indication: Product used for unknown indication
     Dosage: ENGLISH TRANSLATION: BAG (GRANULATE), 1G
  6. MACROGOL/ZOUTEN PDR V DRANK (MOVIC/MOLAX/LAXT/GEN) / Brand name not sp [Concomitant]
     Indication: Product used for unknown indication
     Dosage: ENGLISH TRANSLATION: POWDER FOR DRINK
  7. PANTOPRAZOLE TABLET MSR 40MG / Brand name not specified [Concomitant]
     Indication: Product used for unknown indication
     Dosage: ENGLISH TRANSLATION: GASTRO-RESISTANT TABLET, 40 MG
  8. DOMPERIDONE [Concomitant]
     Active Substance: DOMPERIDONE
     Indication: Product used for unknown indication
     Dosage: TABLET, 10 MG (MILLIGRAM)
  9. APIXABAN TABLET 5MG / Brand name not specified [Concomitant]
     Indication: Product used for unknown indication
     Dosage: TABLET, 5 MG (MILLIGRAM)
  10. OXAZEPAM  TABLET 10MG / Brand name not specified [Concomitant]
     Indication: Product used for unknown indication
     Dosage: TABLET, 10 MG (MILLIGRAM)

REACTIONS (1)
  - Immune-mediated cholangitis [Not Recovered/Not Resolved]
